FAERS Safety Report 7268098-3 (Version None)
Quarter: 2011Q1

REPORT INFORMATION
  Report Type: 
  Country: None (occurrence: None)
  Receive Date: 20110201
  Receipt Date: 20110125
  Transmission Date: 20110831
  Serious: No
  Sender: FDA-Public Use
  Company Number: US-PFIZER INC-2011012778

PATIENT
  Sex: Female

DRUGS (1)
  1. PROTONIX [Suspect]
     Dosage: UNK

REACTIONS (5)
  - CONFUSIONAL STATE [None]
  - PARAESTHESIA ORAL [None]
  - HEADACHE [None]
  - DIZZINESS [None]
  - DISTURBANCE IN ATTENTION [None]
